FAERS Safety Report 19883886 (Version 3)
Quarter: 2021Q4

REPORT INFORMATION
  Report Type: Spontaneous
  Country: BR (occurrence: BR)
  Receive Date: 20210927
  Receipt Date: 20211025
  Transmission Date: 20220303
  Serious: Yes (Hospitalization)
  Sender: FDA-Public Use
  Company Number: NVSC2021BR218061

PATIENT
  Age: 79 Year
  Sex: Female
  Weight: 93 kg

DRUGS (5)
  1. FEMARA [Suspect]
     Active Substance: LETROZOLE
     Indication: Breast cancer
     Dosage: (FROM FEBRUARY OR MAR 2020), 1 DF, QD
     Route: 065
  2. EUCARDION [Concomitant]
     Indication: Hypertension
     Dosage: (3 YEARS AGO), 1 DF, QD
     Route: 048
  3. CLONIDINE [Concomitant]
     Active Substance: CLONIDINE
     Indication: Hypertension
     Dosage: (3 YEARS AGO), 1 DF, BID
     Route: 048
  4. AMIODARONE HYDROCHLORIDE [Concomitant]
     Active Substance: AMIODARONE HYDROCHLORIDE
     Indication: Hypertension
     Dosage: 1 DF, QD (MONDAY, WEDNESDAY AND FRIDAY)
     Route: 048
  5. DIFLEX [Concomitant]
     Indication: Hypertension
     Dosage: (3 YEARS AGO), 1 DF, QD
     Route: 048

REACTIONS (5)
  - COVID-19 [Recovered/Resolved with Sequelae]
  - Urinary tract infection [Recovered/Resolved]
  - Decreased appetite [Recovered/Resolved]
  - Asthenia [Recovered/Resolved]
  - Pain in extremity [Not Recovered/Not Resolved]

NARRATIVE: CASE EVENT DATE: 20210701
